FAERS Safety Report 20156276 (Version 1)
Quarter: 2021Q4

REPORT INFORMATION
  Report Type: Spontaneous
  Country: US (occurrence: US)
  Receive Date: 20211207
  Receipt Date: 20211207
  Transmission Date: 20220303
  Serious: Yes (Other)
  Sender: FDA-Public Use
  Company Number: US-ADMA BIOLOGICS INC.-US-2021ADM000064

PATIENT
  Age: 60 Year
  Sex: Male

DRUGS (3)
  1. ASCENIV [Suspect]
     Active Substance: HUMAN IMMUNOGLOBULIN G
     Indication: Myasthenia gravis
     Dosage: UNK
     Route: 042
  2. PYRIDOSTIGMINE [Concomitant]
     Active Substance: PYRIDOSTIGMINE
     Indication: Myasthenia gravis
     Dosage: UNK
     Route: 042
  3. MYCOPHENOLATE MOFETIL [Concomitant]
     Active Substance: MYCOPHENOLATE MOFETIL
     Indication: Myasthenia gravis
     Dosage: UNK
     Route: 065

REACTIONS (1)
  - Pseudolymphoma [Unknown]
